FAERS Safety Report 4999255-4 (Version None)
Quarter: 2006Q2

REPORT INFORMATION
  Report Type: 
  Country: None (occurrence: None)
  Receive Date: 20060509
  Receipt Date: 20060428
  Transmission Date: 20061013
  Serious: Yes (Other)
  Sender: FDA-Public Use
  Company Number: GXKR2006US02425

PATIENT
  Age: 23 Year

DRUGS (1)
  1. PHENDIMETRAZINE (NGX) (PHENDIMETRAZINE) [Suspect]
     Indication: OBESITY
     Dosage: ORAL
     Route: 048

REACTIONS (1)
  - RHABDOMYOLYSIS [None]
